FAERS Safety Report 6896610-2 (Version None)
Quarter: 2010Q3

REPORT INFORMATION
  Report Type: 
  Country: None (occurrence: None)
  Receive Date: 20100802
  Receipt Date: 20070117
  Transmission Date: 20110219
  Serious: No
  Sender: FDA-Public Use
  Company Number: US-PFIZER INC-2007005599

PATIENT
  Sex: Male
  Weight: 129.27 kg

DRUGS (5)
  1. LYRICA [Suspect]
     Indication: NEUROPATHY PERIPHERAL
     Dates: start: 20061228
  2. LYRICA [Suspect]
     Indication: RADICULOPATHY
  3. BACLOFEN [Suspect]
     Indication: MUSCLE SPASMS
     Dates: start: 20061228
  4. RESTORIL [Concomitant]
     Dates: start: 20060601
  5. ATIVAN [Concomitant]
     Dates: start: 20060601

REACTIONS (5)
  - ABNORMAL SENSATION IN EYE [None]
  - EYE IRRITATION [None]
  - HYPOAESTHESIA ORAL [None]
  - OCULAR HYPERAEMIA [None]
  - VISION BLURRED [None]
